FAERS Safety Report 13821451 (Version 2)
Quarter: 2017Q3

REPORT INFORMATION
  Report Type: Spontaneous
  Country: JP (occurrence: JP)
  Receive Date: 20170801
  Receipt Date: 20170817
  Transmission Date: 20171127
  Serious: Yes (Death, Other)
  Sender: FDA-Public Use
  Company Number: JP-BAYER-2017-140890

PATIENT
  Age: 48 Year
  Sex: Male
  Weight: 55 kg

DRUGS (5)
  1. FAMOTIDINE. [Concomitant]
     Active Substance: FAMOTIDINE
     Dosage: DAILY DOSE 20MG
     Route: 048
  2. PROMAC [NITROFURANTOIN] [Concomitant]
     Dosage: DAILY DOSE 150MG
     Route: 048
  3. STIVARGA [Suspect]
     Active Substance: REGORAFENIB
     Indication: RECTAL CANCER
     Dosage: 120MG DAILY
     Route: 048
     Dates: start: 20150501, end: 20150518
  4. AMLODIPINE [Concomitant]
     Active Substance: AMLODIPINE BESYLATE
     Dosage: DAILY DOSE5MG
     Route: 048
  5. MAGNESIUM [Concomitant]
     Active Substance: MAGNESIUM
     Dosage: DAILY DOSE 1500MG

REACTIONS (2)
  - Rectal cancer [None]
  - Death [Fatal]
